FAERS Safety Report 22136471 (Version 1)
Quarter: 2023Q1

REPORT INFORMATION
  Report Type: Spontaneous
  Country: GB (occurrence: GB)
  Receive Date: 20230324
  Receipt Date: 20230324
  Transmission Date: 20230417
  Serious: Yes (Hospitalization, Disabling, Other)
  Sender: FDA-Public Use
  Company Number: GB-MHRA-MED-202303171533470310-TVWRS

PATIENT
  Sex: Male

DRUGS (4)
  1. BROMOCRIPTINE [Suspect]
     Active Substance: BROMOCRIPTINE
     Indication: Prolactin-producing pituitary tumour
     Dosage: 2.5 MILLIGRAM, QD (2.5MG ONCE DAILY)
     Route: 065
  2. AMLODIPINE [Concomitant]
     Active Substance: AMLODIPINE BESYLATE
     Indication: Hypertension
     Dosage: UNK
     Route: 065
  3. FLUTICASONE [Concomitant]
     Active Substance: FLUTICASONE
     Indication: Nasal polyps
     Dosage: UNK
     Route: 065
  4. PIZOTYLINE [Concomitant]
     Active Substance: PIZOTYLINE
     Dosage: UNK
     Route: 065

REACTIONS (1)
  - Mitral valve incompetence [Not Recovered/Not Resolved]
